FAERS Safety Report 10653191 (Version 1)
Quarter: 2014Q4

REPORT INFORMATION
  Report Type: Spontaneous
  Country: US (occurrence: US)
  Receive Date: 20141215
  Receipt Date: 20141215
  Transmission Date: 20150529
  Serious: No
  Sender: FDA-Public Use
  Company Number: US-GILEAD-2014-0127557

PATIENT
  Age: 79 Year
  Sex: Female

DRUGS (22)
  1. LETAIRIS [Suspect]
     Active Substance: AMBRISENTAN
     Indication: PULMONARY ARTERIAL HYPERTENSION
     Dosage: 10 MG, QD
     Route: 065
     Dates: start: 20130522
  2. REVATIO [Concomitant]
     Active Substance: SILDENAFIL CITRATE
  3. CHONDROITIN SULFATE (BOVINE)\GLUCOSAMINE SULFATE [Concomitant]
     Active Substance: CHONDROITIN SULFATE (BOVINE)\GLUCOSAMINE SULFATE
  4. AMBIEN [Concomitant]
     Active Substance: ZOLPIDEM TARTRATE
  5. LASIX [Concomitant]
     Active Substance: FUROSEMIDE
  6. KLOR-CON [Concomitant]
     Active Substance: POTASSIUM CHLORIDE
  7. PANTOPRAZOLE [Concomitant]
     Active Substance: PANTOPRAZOLE SODIUM
  8. ZETIA [Concomitant]
     Active Substance: EZETIMIBE
  9. TYLENOL [Concomitant]
     Active Substance: ACETAMINOPHEN
  10. ESTRADIOL. [Concomitant]
     Active Substance: ESTRADIOL
  11. VITAMIN D3 [Concomitant]
     Active Substance: CHOLECALCIFEROL
  12. CALCIUM CITRATE [Concomitant]
     Active Substance: CALCIUM CITRATE
  13. STOOL SOFTENER [Concomitant]
     Active Substance: DOCUSATE CALCIUM
  14. AMLODIPINE [Concomitant]
     Active Substance: AMLODIPINE BESYLATE
  15. DIGOXIN. [Concomitant]
     Active Substance: DIGOXIN
  16. FISH OIL [Concomitant]
     Active Substance: FISH OIL
  17. METOPROLOL [Concomitant]
     Active Substance: METOPROLOL
  18. MULTI VITAMIN [Concomitant]
     Active Substance: VITAMINS
  19. VITAMIN C [Concomitant]
     Active Substance: ASCORBIC ACID
  20. SENNA [Concomitant]
     Active Substance: SENNA LEAF\SENNOSIDES\SENNOSIDES A AND B
  21. CRESTOR [Concomitant]
     Active Substance: ROSUVASTATIN CALCIUM
  22. DIOVAN [Concomitant]
     Active Substance: VALSARTAN

REACTIONS (1)
  - Urinary tract infection [Not Recovered/Not Resolved]
